FAERS Safety Report 13914811 (Version 1)
Quarter: 2017Q3

REPORT INFORMATION
  Report Type: Spontaneous
  Country: US (occurrence: None)
  Receive Date: 20170827
  Receipt Date: 20170827
  Transmission Date: 20171127
  Serious: Yes (Hospitalization)
  Sender: FDA-Public Use
  Company Number: None

PATIENT
  Age: 64 Year
  Sex: Male

DRUGS (25)
  1. MULTI [Concomitant]
  2. DIPHENHYDRAM [Concomitant]
  3. WARFARIN [Concomitant]
     Active Substance: WARFARIN
  4. PREDNISONE. [Concomitant]
     Active Substance: PREDNISONE
  5. LAMVUDINE [Concomitant]
  6. RENAGEL [Concomitant]
     Active Substance: SEVELAMER HYDROCHLORIDE
  7. SENSIPAR [Suspect]
     Active Substance: CINACALCET HYDROCHLORIDE
     Indication: END STAGE RENAL DISEASE
     Route: 048
     Dates: start: 20170403
  8. GLIPIZIDE. [Concomitant]
     Active Substance: GLIPIZIDE
  9. FOLIC ACID. [Concomitant]
     Active Substance: FOLIC ACID
  10. ADVAIR HFA [Concomitant]
     Active Substance: FLUTICASONE PROPIONATE\SALMETEROL XINAFOATE
  11. SIMVASTATIN. [Concomitant]
     Active Substance: SIMVASTATIN
  12. CALC ACETATE [Concomitant]
  13. ONE TOUCH [Concomitant]
  14. DILTIAZEM. [Concomitant]
     Active Substance: DILTIAZEM
  15. ATORVASTATIN [Concomitant]
     Active Substance: ATORVASTATIN
  16. CITALOPRAM [Concomitant]
     Active Substance: CITALOPRAM HYDROBROMIDE
  17. LANTUS [Concomitant]
     Active Substance: INSULIN GLARGINE
  18. OMEPRAZOLE. [Concomitant]
     Active Substance: OMEPRAZOLE
  19. CARTIA XT [Concomitant]
     Active Substance: DILTIAZEM HYDROCHLORIDE
  20. DOK [Concomitant]
     Active Substance: DOCUSATE SODIUM
  21. ASPIRIN. [Concomitant]
     Active Substance: ASPIRIN
  22. OMEPRAZOLE. [Concomitant]
     Active Substance: OMEPRAZOLE
  23. GABAPENTIN. [Concomitant]
     Active Substance: GABAPENTIN
  24. AMOXICILLIN. [Concomitant]
     Active Substance: AMOXICILLIN
  25. SPIRIVA [Concomitant]
     Active Substance: TIOTROPIUM BROMIDE MONOHYDRATE

REACTIONS (1)
  - Chronic obstructive pulmonary disease [None]

NARRATIVE: CASE EVENT DATE: 2017
